FAERS Safety Report 9891567 (Version 1)
Quarter: 2014Q1

REPORT INFORMATION
  Report Type: Spontaneous
  Country: US (occurrence: None)
  Receive Date: 20140210
  Receipt Date: 20140210
  Transmission Date: 20141002
  Serious: Yes (Death)
  Sender: FDA-Public Use
  Company Number: SYM-2014-16358

PATIENT
  Sex: Male

DRUGS (13)
  1. XENAZINE [Suspect]
     Indication: TREMOR
     Route: 048
     Dates: start: 20130829
  2. TYLENOL (PARACETAMOL) [Concomitant]
  3. ARTIFICIAL TEARS (HYPROMELLOSE) [Concomitant]
  4. DEPAKOTE (VALPROATE SEMISODIUM) [Concomitant]
  5. DOCUSATE [Concomitant]
  6. EXELON (RIVASTIGMINE) [Concomitant]
  7. FOLIC ACID [Concomitant]
  8. KETOCONAZOLE [Concomitant]
  9. CLONAZEPAM [Concomitant]
  10. ASPIRIN (ACETYLSALICYLIC ACID) [Concomitant]
  11. LISINOPRIL [Concomitant]
  12. TRAZADONE (TRAZODONE HYDROCHLORIDE) [Concomitant]
  13. CDOPA (OTHER THERAPEUTIC PRODUCTS) [Concomitant]

REACTIONS (1)
  - Death [None]
